FAERS Safety Report 20483234 (Version 1)
Quarter: 2022Q1

REPORT INFORMATION
  Report Type: Other
  Country: PH (occurrence: None)
  Receive Date: 20220217
  Receipt Date: 20220217
  Transmission Date: 20220424
  Serious: Yes (Other)
  Sender: FDA-Public Use
  Company Number: PH-ROCHE-3012180

PATIENT
  Age: 69 Year
  Sex: Female
  Weight: 44.8 kg

DRUGS (2)
  1. MABTHERA [Suspect]
     Active Substance: RITUXIMAB
     Indication: Follicular lymphoma
     Route: 041
     Dates: start: 20190730, end: 20210201
  2. BENDAMUSTINE [Concomitant]
     Active Substance: BENDAMUSTINE

REACTIONS (12)
  - Dyspnoea [Recovered/Resolved]
  - Pyrexia [Recovered/Resolved]
  - Rash [Recovered/Resolved]
  - Chest discomfort [Recovered/Resolved]
  - Flushing [Recovered/Resolved]
  - Chills [Recovered/Resolved]
  - Urticaria [Recovered/Resolved]
  - Hypoaesthesia [Recovered/Resolved]
  - Abdominal distension [Unknown]
  - Conjunctival hyperaemia [Unknown]
  - Nasal congestion [Unknown]
  - Diarrhoea [Unknown]

NARRATIVE: CASE EVENT DATE: 20190730
